FAERS Safety Report 6095177-9 (Version None)
Quarter: 2009Q1

REPORT INFORMATION
  Report Type: 
  Country: None (occurrence: None)
  Receive Date: 20090227
  Receipt Date: 20080206
  Transmission Date: 20090719
  Serious: No
  Sender: FDA-Public Use
  Company Number: A0707818A

PATIENT
  Sex: Female

DRUGS (1)
  1. LAMICTAL [Suspect]
     Indication: ANXIETY
     Dosage: 25MG PER DAY
     Route: 048
     Dates: start: 20080129

REACTIONS (3)
  - ANGER [None]
  - IMPATIENCE [None]
  - TREATMENT NONCOMPLIANCE [None]
